FAERS Safety Report 6047847-6 (Version None)
Quarter: 2009Q1

REPORT INFORMATION
  Report Type: 
  Country: None (occurrence: None)
  Receive Date: 20090123
  Receipt Date: 20090120
  Transmission Date: 20090719
  Serious: Yes (Hospitalization, Other)
  Sender: FDA-Public Use
  Company Number: IE-PFIZER INC-2008151438

PATIENT

DRUGS (1)
  1. ATORVASTATIN CALCIUM [Suspect]
     Route: 048

REACTIONS (3)
  - CIRCULATORY COLLAPSE [None]
  - MUSCULAR WEAKNESS [None]
  - NAUSEA [None]
